FAERS Safety Report 18259369 (Version 1)
Quarter: 2020Q3

REPORT INFORMATION
  Report Type: Spontaneous
  Country: US (occurrence: US)
  Receive Date: 20200911
  Receipt Date: 20200911
  Transmission Date: 20201103
  Serious: No
  Sender: FDA-Public Use
  Company Number: NVSC2020US249470

PATIENT
  Sex: Female

DRUGS (1)
  1. XIIDRA [Suspect]
     Active Substance: LIFITEGRAST
     Indication: PRODUCT USED FOR UNKNOWN INDICATION
     Dosage: 1 DRP (12 HOURS APART)
     Route: 065

REACTIONS (4)
  - Eye irritation [Unknown]
  - Sinus disorder [Unknown]
  - Eye pain [Unknown]
  - Blood pressure measurement [Unknown]
